FAERS Safety Report 10262234 (Version 1)
Quarter: 2014Q2

REPORT INFORMATION
  Report Type: Spontaneous
  Country: US (occurrence: None)
  Receive Date: 20140624
  Receipt Date: 20140624
  Transmission Date: 20141212
  Serious: Yes (Life-Threatening, Other)
  Sender: FDA-Public Use
  Company Number: None

PATIENT
  Age: 50 Year
  Sex: Male
  Weight: 88.45 kg

DRUGS (2)
  1. MONTELUKAST [Suspect]
     Indication: MULTIPLE ALLERGIES
     Dosage: 1 PILL, ONCE DAILY, TAKEN BY MOUTH
     Route: 048
     Dates: start: 20140406, end: 20140608
  2. MONTELUKAST [Suspect]
     Dosage: 1 PILL, ONCE DAILY, TAKEN BY MOUTH
     Route: 048
     Dates: start: 20140406, end: 20140608

REACTIONS (8)
  - Depression [None]
  - Anger [None]
  - Concussion [None]
  - Dysphagia [None]
  - Sinus disorder [None]
  - Arthralgia [None]
  - Suicidal ideation [None]
  - Head injury [None]
